FAERS Safety Report 9675515 (Version 1)
Quarter: 2013Q4

REPORT INFORMATION
  Report Type: Spontaneous
  Country: US (occurrence: US)
  Receive Date: 20131107
  Receipt Date: 20131107
  Transmission Date: 20140711
  Serious: Yes (Hospitalization)
  Sender: FDA-Public Use
  Company Number: US-MYLANLABS-2013S1024379

PATIENT
  Age: 18 Year
  Sex: Female

DRUGS (2)
  1. KETAMINE [Suspect]
     Indication: DRUG ABUSE
     Route: 065
  2. COCAINE [Concomitant]
     Route: 065

REACTIONS (4)
  - Drug abuse [Unknown]
  - Cystitis noninfective [Unknown]
  - Cholecystitis [Unknown]
  - Cholangitis [Unknown]
